FAERS Safety Report 8532479-8 (Version None)
Quarter: 2012Q3

REPORT INFORMATION
  Report Type: 
  Country: None (occurrence: None)
  Receive Date: 20120716
  Receipt Date: 20120716
  Transmission Date: 20120928
  Serious: Yes (Other)
  Sender: FDA-Public Use
  Company Number: None

PATIENT
  Age: 37 Year
  Sex: Female
  Weight: 72.5755 kg

DRUGS (1)
  1. SUBOXONE [Suspect]
     Indication: RENAL PAIN
     Dosage: 1/2 FILM 2 TIMES A DAY SL
     Route: 060
     Dates: start: 20120531, end: 20120614

REACTIONS (5)
  - DYSURIA [None]
  - DYSPHAGIA [None]
  - MUSCLE SPASMS [None]
  - OESOPHAGEAL SPASM [None]
  - MUSCLE TIGHTNESS [None]
